FAERS Safety Report 9218515 (Version 1)
Quarter: 2013Q2

REPORT INFORMATION
  Report Type: Spontaneous
  Country: NZ (occurrence: NZ)
  Receive Date: 20130409
  Receipt Date: 20130409
  Transmission Date: 20140414
  Serious: Yes (Other)
  Sender: FDA-Public Use
  Company Number: NZ-RANBAXY-2013US-67036

PATIENT
  Age: 37 Year
  Sex: Female

DRUGS (2)
  1. PSEUDOEPHEDRINE [Suspect]
     Indication: UPPER RESPIRATORY TRACT INFECTION
     Dosage: 480 MG/DAY
     Route: 065
  2. FLUOXETINE [Suspect]
     Indication: PRODUCT USED FOR UNKNOWN INDICATION
     Dosage: 20 MG, DAILY
     Route: 065

REACTIONS (5)
  - Mania [Unknown]
  - Off label use [Unknown]
  - Overdose [Unknown]
  - Serotonin syndrome [Unknown]
  - Drug interaction [Unknown]
